FAERS Safety Report 8955031 (Version 1)
Quarter: 2012Q4

REPORT INFORMATION
  Report Type: 
  Country: US (occurrence: US)
  Receive Date: 20121207
  Receipt Date: 20121207
  Transmission Date: 20130627
  Serious: No
  Sender: FDA-Public Use
  Company Number: US-B.I. PHARMACEUTICALS,INC./RIDGEFIELD-2012-BI-01675BP

PATIENT
  Sex: Male
  Weight: 112 kg

DRUGS (5)
  1. PRADAXA [Suspect]
     Indication: ATRIAL FIBRILLATION
     Dosage: 150 mg
     Route: 048
     Dates: start: 201209
  2. PRADAXA [Suspect]
     Dosage: 300 mg
     Route: 048
     Dates: start: 201011, end: 201209
  3. BYSTOLIC [Concomitant]
     Indication: HYPERTENSION
  4. MULTAQ [Concomitant]
     Indication: CEREBROVASCULAR ACCIDENT PROPHYLAXIS
  5. ASPIRIN [Concomitant]
     Indication: CEREBROVASCULAR ACCIDENT PROPHYLAXIS

REACTIONS (1)
  - Constipation [Not Recovered/Not Resolved]
